FAERS Safety Report 4899534-5 (Version None)
Quarter: 2006Q1

REPORT INFORMATION
  Report Type: 
  Country: None (occurrence: None)
  Receive Date: 20060131
  Receipt Date: 20060124
  Transmission Date: 20060701
  Serious: Yes (Hospitalization, Other)
  Sender: FDA-Public Use
  Company Number: 2006AL000252

PATIENT
  Age: 78 Year
  Sex: Female

DRUGS (5)
  1. TEMAZEPAM [Suspect]
     Route: 048
  2. CHLORPROMAZINE [Concomitant]
  3. TOLTERODINE [Concomitant]
  4. TRIMIPRAMINE MALEATE [Concomitant]
  5. CLOPIDOGREL [Concomitant]

REACTIONS (2)
  - DIARRHOEA [None]
  - HYPONATRAEMIA [None]
